FAERS Safety Report 4773606-8 (Version None)
Quarter: 2005Q3

REPORT INFORMATION
  Report Type: 
  Country: None (occurrence: None)
  Receive Date: 20050914
  Receipt Date: 20041028
  Transmission Date: 20060218
  Serious: Yes (Hospitalization)
  Sender: FDA-Public Use
  Company Number: 163-20785-041007

PATIENT
  Age: 44 Year
  Sex: Male
  Weight: 68.9467 kg

DRUGS (2)
  1. THALOMID [Suspect]
     Indication: BRAIN NEOPLASM
     Dosage: 800 MG, QHS, ORAL
     Route: 048
     Dates: start: 20040724
  2. PROCARBAZINE (PROCARBAZINE) (UNKNOWN) [Suspect]
     Indication: BRAIN NEOPLASM
     Dosage: 1700MG ORAL OVER 5 DAYS
     Dates: start: 20040922, end: 20040926

REACTIONS (1)
  - MENTAL STATUS CHANGES [None]
